FAERS Safety Report 9392750 (Version 1)
Quarter: 2013Q3

REPORT INFORMATION
  Report Type: Report from Study
  Country: DE (occurrence: DE)
  Receive Date: 20130710
  Receipt Date: 20130710
  Transmission Date: 20140515
  Serious: Yes (Other)
  Sender: FDA-Public Use
  Company Number: DE-ROCHE-1245977

PATIENT
  Sex: Female
  Weight: 60 kg

DRUGS (5)
  1. IBANDRONIC ACID [Suspect]
     Indication: OSTEOPOROSIS
     Route: 042
     Dates: start: 20100805, end: 20121204
  2. AFINITOR [Suspect]
     Indication: BREAST CANCER METASTATIC
     Route: 048
     Dates: start: 20121107, end: 20130124
  3. SIMVASTATIN [Concomitant]
     Route: 065
     Dates: start: 20000101
  4. EXEMESTANE [Concomitant]
     Route: 065
     Dates: start: 20121107, end: 20130124
  5. ASS [Concomitant]
     Route: 065
     Dates: start: 20010101

REACTIONS (1)
  - Blood creatinine increased [Unknown]
